FAERS Safety Report 21729222 (Version 1)
Quarter: 2022Q4

REPORT INFORMATION
  Report Type: Spontaneous
  Country: JP (occurrence: None)
  Receive Date: 20221214
  Receipt Date: 20221214
  Transmission Date: 20230113
  Serious: Yes (Other)
  Sender: FDA-Public Use
  Company Number: 2022A341319

PATIENT
  Age: 88 Year
  Sex: Male
  Weight: 68 kg

DRUGS (4)
  1. DAPAGLIFLOZIN [Suspect]
     Active Substance: DAPAGLIFLOZIN
     Indication: Cardiac failure chronic
     Dosage: 10.0MG UNKNOWN
     Route: 048
     Dates: start: 20220118
  2. FUROSEMIDE [Concomitant]
     Active Substance: FUROSEMIDE
     Route: 042
     Dates: start: 20220117, end: 20220117
  3. FUROSEMIDE [Concomitant]
     Active Substance: FUROSEMIDE
     Route: 042
     Dates: start: 20220117, end: 20220118
  4. SAMSCA [Concomitant]
     Active Substance: TOLVAPTAN
     Route: 048
     Dates: start: 20220117

REACTIONS (5)
  - Cardiac failure congestive [Recovered/Resolved]
  - Cardiorenal syndrome [Unknown]
  - Dehydration [Unknown]
  - Pleural effusion [Recovered/Resolved]
  - Nephrotic syndrome [Recovering/Resolving]

NARRATIVE: CASE EVENT DATE: 20220120
